FAERS Safety Report 8997125 (Version 1)
Quarter: 2013Q1

REPORT INFORMATION
  Report Type: Spontaneous
  Country: IL (occurrence: IL)
  Receive Date: 20130104
  Receipt Date: 20130104
  Transmission Date: 20140127
  Serious: Yes (Hospitalization)
  Sender: FDA-Public Use
  Company Number: IL-JNJFOC-20130100991

PATIENT
  Age: 65 Year
  Sex: Female

DRUGS (5)
  1. INTELENCE [Suspect]
     Indication: PRODUCT USED FOR UNKNOWN INDICATION
     Dosage: FOR THREE YEARS
     Route: 048
  2. KIVEXA [Suspect]
     Indication: PRODUCT USED FOR UNKNOWN INDICATION
     Dosage: FOR THREE YEARS
     Route: 065
  3. ELTROXIN [Concomitant]
     Route: 065
  4. INSULIN [Concomitant]
     Route: 065
  5. RESPRIM [Concomitant]
     Route: 065

REACTIONS (1)
  - Encephalitis [Recovering/Resolving]
